FAERS Safety Report 13803493 (Version 1)
Quarter: 2017Q3

REPORT INFORMATION
  Report Type: Report from Study
  Country: None (occurrence: DE)
  Receive Date: 20170728
  Receipt Date: 20170728
  Transmission Date: 20171127
  Serious: Yes (Hospitalization)
  Sender: FDA-Public Use
  Company Number: DE-ABBVIE-17K-062-2052617-00

PATIENT
  Age: 59 Year
  Sex: Male

DRUGS (6)
  1. LEFLUNOMID [Concomitant]
     Active Substance: LEFLUNOMIDE
     Indication: PRODUCT USED FOR UNKNOWN INDICATION
     Dates: end: 2014
  2. MTX [Concomitant]
     Active Substance: METHOTREXATE SODIUM
     Dosage: UNKNOWN
     Dates: start: 2014
  3. MTX [Concomitant]
     Active Substance: METHOTREXATE SODIUM
     Indication: PRODUCT USED FOR UNKNOWN INDICATION
     Dates: end: 2014
  4. HUMIRA [Suspect]
     Active Substance: ADALIMUMAB
     Indication: RHEUMATIC DISORDER
     Route: 058
     Dates: start: 201208, end: 201404
  5. MTX [Concomitant]
     Active Substance: METHOTREXATE SODIUM
  6. SIRUKUMAB [Concomitant]
     Active Substance: SIRUKUMAB
     Indication: PRODUCT USED FOR UNKNOWN INDICATION

REACTIONS (1)
  - Acquired hydrocele [Unknown]

NARRATIVE: CASE EVENT DATE: 20161115
